FAERS Safety Report 19155054 (Version 3)
Quarter: 2021Q2

REPORT INFORMATION
  Report Type: Spontaneous
  Country: DE (occurrence: DE)
  Receive Date: 20210419
  Receipt Date: 20210511
  Transmission Date: 20210717
  Serious: Yes (Other)
  Sender: FDA-Public Use
  Company Number: DE-GILEAD-2021-0524667

PATIENT
  Age: 37 Year
  Sex: Male

DRUGS (5)
  1. EMTENOVO [Suspect]
     Active Substance: EMTRICITABINE\TENOFOVIR DISOPROXIL SUCCINATE
     Indication: PROPHYLAXIS AGAINST HIV INFECTION
     Dosage: 200/245 MG, EVERY OTHER WEEK
     Route: 065
  2. CANDESARTAN 1 A PHARMA [Concomitant]
     Active Substance: CANDESARTAN
     Indication: HYPERTENSION
  3. TRUVADA [Suspect]
     Active Substance: EMTRICITABINE\TENOFOVIR DISOPROXIL FUMARATE
     Indication: PROPHYLAXIS AGAINST HIV INFECTION
     Dosage: 200/245 MG, EVERY OTHER WEEK
     Route: 065
  4. SALBUTAMOL 1 A PHARMA [Concomitant]
     Active Substance: ALBUTEROL
     Indication: ASTHMA
  5. AMLODIPIN (BESILAT) DEXCEL [Concomitant]
     Active Substance: AMLODIPINE BESYLATE
     Indication: HYPERTENSION

REACTIONS (1)
  - Blood pressure increased [Unknown]
